FAERS Safety Report 21279852 (Version 1)
Quarter: 2022Q3

REPORT INFORMATION
  Report Type: Spontaneous
  Country: US (occurrence: None)
  Receive Date: 20220901
  Receipt Date: 20220901
  Transmission Date: 20221027
  Serious: No
  Sender: FDA-Public Use
  Company Number: US-Unichem Pharmaceuticals (USA) Inc-UCM202208-000765

PATIENT
  Age: 79 Year
  Sex: Female
  Weight: 74.84 kg

DRUGS (2)
  1. ATENOLOL [Suspect]
     Active Substance: ATENOLOL
     Indication: Hypertension
     Dates: start: 202205
  2. TRIAMTERENE [Concomitant]
     Active Substance: TRIAMTERENE
     Indication: Hypertension
     Dosage: UNKNOWN

REACTIONS (1)
  - Drug ineffective [Unknown]
